FAERS Safety Report 11998944 (Version 1)
Quarter: 2016Q1

REPORT INFORMATION
  Report Type: Spontaneous
  Country: US (occurrence: None)
  Receive Date: 20160202
  Receipt Date: 20160202
  Transmission Date: 20160526
  Serious: No
  Sender: FDA-Public Use
  Company Number: None

PATIENT
  Age: 55 Year
  Sex: Female
  Weight: 74.84 kg

DRUGS (15)
  1. PHENYLEPHRINE INFUSION [Concomitant]
  2. TAMOXIFEN [Concomitant]
     Active Substance: TAMOXIFEN
  3. TRAMADOL. [Concomitant]
     Active Substance: TRAMADOL
  4. LORAZEPAM. [Concomitant]
     Active Substance: LORAZEPAM
  5. HUMALOG [Concomitant]
     Active Substance: INSULIN LISPRO
  6. AMIODARONE [Concomitant]
     Active Substance: AMIODARONE
  7. GABAPENTIN. [Concomitant]
     Active Substance: GABAPENTIN
  8. ALBUTEROL. [Concomitant]
     Active Substance: ALBUTEROL
  9. KCL [Concomitant]
     Active Substance: POTASSIUM CHLORIDE
  10. METOPROLOL. [Concomitant]
     Active Substance: METOPROLOL
  11. TICAGRELOR [Suspect]
     Active Substance: TICAGRELOR
     Indication: ANTICOAGULANT THERAPY
     Route: 048
     Dates: start: 20160201, end: 20160201
  12. ATORVASTATIN [Concomitant]
     Active Substance: ATORVASTATIN
  13. MORPHINE [Concomitant]
     Active Substance: MORPHINE
  14. DIPHENHYDRAMINE. [Concomitant]
     Active Substance: DIPHENHYDRAMINE
  15. NICOTINE TRANSDERMAL SYSTEM [Concomitant]
     Active Substance: NICOTINE

REACTIONS (2)
  - Dyspnoea [None]
  - Rash erythematous [None]

NARRATIVE: CASE EVENT DATE: 20160201
